FAERS Safety Report 9027049 (Version 1)
Quarter: 2013Q1

REPORT INFORMATION
  Report Type: Spontaneous
  Country: SE (occurrence: SE)
  Receive Date: 20130123
  Receipt Date: 20130123
  Transmission Date: 20140127
  Serious: Yes (Hospitalization)
  Sender: FDA-Public Use
  Company Number: SE-ELI_LILLY_AND_COMPANY-SE201301004875

PATIENT
  Age: 33 Year
  Sex: Female

DRUGS (6)
  1. FONTEX [Suspect]
  2. PULMICORT TURBUHALER [Concomitant]
  3. OXIS TURBUHALER [Concomitant]
  4. TEMGESIC [Concomitant]
  5. XANOR [Concomitant]
  6. FLUNITRAZEPAM [Concomitant]

REACTIONS (3)
  - Abdominal pain [Not Recovered/Not Resolved]
  - Vomiting [Not Recovered/Not Resolved]
  - Diarrhoea [Not Recovered/Not Resolved]
